FAERS Safety Report 18578324 (Version 2)
Quarter: 2020Q4

REPORT INFORMATION
  Report Type: Spontaneous
  Country: PL (occurrence: PL)
  Receive Date: 20201204
  Receipt Date: 20201218
  Transmission Date: 20210114
  Serious: No
  Sender: FDA-Public Use
  Company Number: PL-TEVA-2020-PL-1855251

PATIENT
  Age: 54 Year
  Sex: Female
  Weight: 65 kg

DRUGS (4)
  1. OXALIPLATIN TEVA [Suspect]
     Active Substance: OXALIPLATIN
     Indication: RECTAL CANCER
     Route: 042
     Dates: start: 20170724, end: 20170724
  2. OXALIPLATIN TEVA [Suspect]
     Active Substance: OXALIPLATIN
     Route: 042
     Dates: start: 20170807, end: 20170807
  3. FLUOROURACIL-EBEWE [Suspect]
     Active Substance: FLUOROURACIL
     Route: 042
     Dates: start: 20170807, end: 20170807
  4. FLUOROURACIL-EBEWE [Suspect]
     Active Substance: FLUOROURACIL
     Indication: RECTAL CANCER
     Route: 042
     Dates: start: 20170724, end: 20170724

REACTIONS (6)
  - Malaise [Recovered/Resolved]
  - C-reactive protein increased [Recovered/Resolved]
  - Headache [Recovered/Resolved]
  - Pyrexia [Recovered/Resolved]
  - Erythema [Recovered/Resolved]
  - Blood pressure increased [Recovered/Resolved]

NARRATIVE: CASE EVENT DATE: 201707
